FAERS Safety Report 24717980 (Version 1)
Quarter: 2024Q4

REPORT INFORMATION
  Report Type: Spontaneous
  Country: US (occurrence: None)
  Receive Date: 20241209
  Receipt Date: 20241209
  Transmission Date: 20250114
  Serious: Yes (Life-Threatening)
  Sender: Public
  Company Number: None

PATIENT
  Age: 14 Year
  Sex: Female
  Weight: 52.2 kg

DRUGS (1)
  1. ISOTRETINOIN [Suspect]
     Active Substance: ISOTRETINOIN
     Indication: Acne
     Dosage: OTHER QUANTITY : 1 CAPSULE(S);?FREQUENCY : TWICE A DAY;?
     Route: 048
     Dates: start: 20240701, end: 20241202

REACTIONS (4)
  - Anxiety [None]
  - Depression [None]
  - Loss of personal independence in daily activities [None]
  - Therapy cessation [None]

NARRATIVE: CASE EVENT DATE: 20241125
